FAERS Safety Report 12909019 (Version 1)
Quarter: 2016Q4

REPORT INFORMATION
  Report Type: Spontaneous
  Country: US (occurrence: US)
  Receive Date: 20161103
  Receipt Date: 20161103
  Transmission Date: 20170207
  Serious: No
  Sender: FDA-Public Use
  Company Number: US-JAZZ-2016-US-016716

PATIENT
  Age: 47 Year
  Sex: Female

DRUGS (17)
  1. ADDERALL [Concomitant]
     Active Substance: AMPHETAMINE ASPARTATE\AMPHETAMINE SULFATE\DEXTROAMPHETAMINE SACCHARATE\DEXTROAMPHETAMINE SULFATE
  2. CHOLINE CITRATE [Concomitant]
  3. LORATADINE. [Concomitant]
     Active Substance: LORATADINE
  4. VITAMIN B2 [Concomitant]
     Active Substance: RIBOFLAVIN
  5. IBUPROFEN. [Concomitant]
     Active Substance: IBUPROFEN
  6. MECLIZINE HCL [Concomitant]
     Active Substance: MECLIZINE HYDROCHLORIDE
  7. AMLODIPINE BESYLATE. [Concomitant]
     Active Substance: AMLODIPINE BESYLATE
  8. MAGNESIUM OXIDE. [Concomitant]
     Active Substance: MAGNESIUM OXIDE
  9. DHEA [Concomitant]
     Active Substance: PRASTERONE
  10. FISH OIL [Concomitant]
     Active Substance: FISH OIL
  11. PROBIOTIC [Concomitant]
     Active Substance: PROBIOTICS NOS
  12. JUICE PLUS [Concomitant]
     Active Substance: DIETARY SUPPLEMENT
  13. ALBUTEROL SULFATE HFA [Concomitant]
     Active Substance: ALBUTEROL SULFATE
  14. DRAMAMINE [Concomitant]
     Active Substance: DIMENHYDRINATE
  15. VITAMIN B12 [Concomitant]
     Active Substance: CYANOCOBALAMIN
  16. XYREM [Suspect]
     Active Substance: SODIUM OXYBATE
     Indication: NARCOLEPSY
     Dosage: 2.25 G, BID
     Route: 048
     Dates: start: 20160829
  17. VITAMIN D3 [Concomitant]
     Active Substance: CHOLECALCIFEROL

REACTIONS (5)
  - Dizziness [Unknown]
  - Pruritus [Unknown]
  - Restless legs syndrome [Not Recovered/Not Resolved]
  - Paraesthesia [Unknown]
  - Feeling hot [Unknown]

NARRATIVE: CASE EVENT DATE: 201608
